FAERS Safety Report 9305759 (Version 1)
Quarter: 2013Q2

REPORT INFORMATION
  Report Type: Spontaneous
  Country: US (occurrence: None)
  Receive Date: 20130522
  Receipt Date: 20130522
  Transmission Date: 20140414
  Serious: Yes (Other)
  Sender: FDA-Public Use
  Company Number: None

PATIENT
  Age: 56 None
  Sex: Female

DRUGS (12)
  1. TECFIDERA [Suspect]
     Dosage: 1 PILL TWICE DAILY WITH FOOD BY MOUTH
     Route: 048
     Dates: start: 20130429, end: 20130511
  2. METOPROLOL [Concomitant]
  3. ASPIRIN [Concomitant]
  4. ATORVASTATIN [Concomitant]
  5. FENOFIBRATE [Concomitant]
  6. CITALOPRAM [Concomitant]
  7. SYNTHORID [Concomitant]
  8. PANTOPRAZOLE [Concomitant]
  9. BENADRYL [Concomitant]
  10. NITROSTAT PRN [Concomitant]
  11. MULTIVITAMIN [Concomitant]
  12. VIT D [Concomitant]

REACTIONS (7)
  - Abdominal pain [None]
  - Nausea [None]
  - Headache [None]
  - Diarrhoea [None]
  - Chills [None]
  - Pyrexia [None]
  - Vomiting [None]
